FAERS Safety Report 13008185 (Version 1)
Quarter: 2016Q4

REPORT INFORMATION
  Report Type: Spontaneous
  Country: US (occurrence: US)
  Receive Date: 20161208
  Receipt Date: 20161208
  Transmission Date: 20170207
  Serious: Yes (Other)
  Sender: FDA-Public Use
  Company Number: US-AMGEN-USASP2016169273

PATIENT
  Age: 41 Year
  Sex: Male

DRUGS (3)
  1. BLINCYTO [Suspect]
     Active Substance: BLINATUMOMAB
     Indication: PRECURSOR B-LYMPHOBLASTIC LYMPHOMA
     Dosage: UNK
     Route: 042
     Dates: start: 201608
  2. DAUNORUBICIN [Suspect]
     Active Substance: DAUNORUBICIN
     Indication: PRODUCT USED FOR UNKNOWN INDICATION
     Dosage: UNK
     Route: 065
  3. VINCRISTINE [Suspect]
     Active Substance: VINCRISTINE
     Indication: PRODUCT USED FOR UNKNOWN INDICATION
     Dosage: UNK
     Route: 065

REACTIONS (9)
  - Ear pain [Unknown]
  - Trigeminal nerve disorder [Unknown]
  - Bone pain [Unknown]
  - Burning sensation [Unknown]
  - Pain in extremity [Unknown]
  - Precursor B-lymphoblastic lymphoma [Unknown]
  - Tongue discolouration [Unknown]
  - Arthralgia [Unknown]
  - Off label use [Unknown]
